FAERS Safety Report 13179821 (Version 2)
Quarter: 2017Q1

REPORT INFORMATION
  Report Type: Spontaneous
  Country: US (occurrence: US)
  Receive Date: 20170202
  Receipt Date: 20170220
  Transmission Date: 20170428
  Serious: No
  Sender: FDA-Public Use
  Company Number: US-GLAXOSMITHKLINE-US2017014075

PATIENT
  Age: 72 Year
  Sex: Female

DRUGS (1)
  1. ANORO ELLIPTA [Suspect]
     Active Substance: UMECLIDINIUM BROMIDE\VILANTEROL TRIFENATATE
     Indication: PRODUCT USED FOR UNKNOWN INDICATION
     Dosage: UNK
     Route: 055
     Dates: start: 20170119

REACTIONS (5)
  - Cough [Not Recovered/Not Resolved]
  - Peripheral swelling [Unknown]
  - Dysgeusia [Unknown]
  - Upper-airway cough syndrome [Not Recovered/Not Resolved]
  - Productive cough [Unknown]

NARRATIVE: CASE EVENT DATE: 201701
